FAERS Safety Report 4603561-2 (Version None)
Quarter: 2005Q1

REPORT INFORMATION
  Report Type: 
  Country: None (occurrence: None)
  Receive Date: 20050308
  Receipt Date: 20050228
  Transmission Date: 20050727
  Serious: Yes (Hospitalization)
  Sender: FDA-Public Use
  Company Number: ESWYE094506OCT04

PATIENT
  Age: 69 Year
  Sex: Male

DRUGS (10)
  1. RAPAMUNE [Suspect]
     Indication: PROPHYLAXIS AGAINST TRANSPLANT REJECTION
     Dosage: ORAL
     Route: 048
     Dates: start: 20040717, end: 20040929
  2. PREDNISONE [Concomitant]
  3. CELLCEPT [Concomitant]
  4. ATORVASTATIN CALCIUM [Concomitant]
  5. OMEPRAZOLE [Concomitant]
  6. MASTICAL (CALCIUM CARBONATE) [Concomitant]
  7. ROCALTROL [Concomitant]
  8. ADALAT OROS (NIFEDIPINE) [Concomitant]
  9. SEPTRIN FORTE (SULFAMETHOXAZOLE/TRIMETHOPRIM) [Concomitant]
  10. SIMULECT (BASILIXUMAB) [Concomitant]

REACTIONS (4)
  - GASTROENTERITIS [None]
  - KIDNEY TRANSPLANT REJECTION [None]
  - SHOCK [None]
  - THROMBOTIC MICROANGIOPATHY [None]
